FAERS Safety Report 16029754 (Version 1)
Quarter: 2019Q2

REPORT INFORMATION
  Report Type: Spontaneous
  Country: US (occurrence: US)
  Receive Date: 20190303
  Receipt Date: 20190303
  Transmission Date: 20190711
  Serious: No
  Sender: FDA-Public Use
  Company Number: None

PATIENT
  Age: 60 Year
  Sex: Male
  Weight: 85.5 kg

DRUGS (10)
  1. ASPIRIN. [Concomitant]
     Active Substance: ASPIRIN
  2. PROBIOTIC [Concomitant]
     Active Substance: PROBIOTICS NOS
  3. TALTZ [Suspect]
     Active Substance: IXEKIZUMAB
     Indication: PSORIASIS
     Dosage: ?          QUANTITY:1 INJECTION(S);OTHER FREQUENCY:ONCE PER MONTH;OTHER ROUTE:INJECTION INTO THE ABDOMEN?
     Dates: start: 20180413, end: 20181215
  4. CENTRUM MULTI VITAMIN [Concomitant]
  5. ALLOPURINOL. [Concomitant]
     Active Substance: ALLOPURINOL
  6. FISH OIL [Concomitant]
     Active Substance: FISH OIL
  7. METROPOLOL [Concomitant]
     Active Substance: METOPROLOL
  8. VIT D [Concomitant]
     Active Substance: VITAMIN D NOS
  9. TALTZ [Suspect]
     Active Substance: IXEKIZUMAB
     Indication: PSORIATIC ARTHROPATHY
     Dosage: ?          QUANTITY:1 INJECTION(S);OTHER FREQUENCY:ONCE PER MONTH;OTHER ROUTE:INJECTION INTO THE ABDOMEN?
     Dates: start: 20180413, end: 20181215
  10. OMEGA 3 [Concomitant]
     Active Substance: OMEGA-3 FATTY ACIDS

REACTIONS (2)
  - Psoriasis [None]
  - Fungal infection [None]

NARRATIVE: CASE EVENT DATE: 20181016
